FAERS Safety Report 9536779 (Version 2)
Quarter: 2013Q3

REPORT INFORMATION
  Report Type: Spontaneous
  Country: JP (occurrence: JP)
  Receive Date: 20130919
  Receipt Date: 20130923
  Transmission Date: 20140515
  Serious: Yes (Life-Threatening)
  Sender: FDA-Public Use
  Company Number: JP-SANOFI-AVENTIS-2013SA091923

PATIENT
  Age: 75 Year
  Sex: Female
  Weight: 70 kg

DRUGS (5)
  1. TAXOTERE [Suspect]
     Indication: BREAST CANCER
     Dosage: DOSE-105/MG/BODY/DOSE
     Route: 042
     Dates: start: 20130912, end: 20130912
  2. TAXOTERE [Suspect]
     Indication: BREAST CANCER
     Dosage: DOSE-105MG/BODY/DOSE
     Route: 042
     Dates: start: 20130822
  3. DECADRON [Concomitant]
     Indication: PROPHYLAXIS
     Dosage: DOSE: 6.6 MG/BODY/DOSE
     Dates: start: 20130912, end: 20130912
  4. TRASTUZUMAB [Concomitant]
     Dosage: DOSE: 416 MG/BODY/DOSE
     Route: 048
     Dates: start: 20130822
  5. PYDOXAL [Concomitant]
     Route: 048

REACTIONS (2)
  - Anaphylactic shock [Recovering/Resolving]
  - Myalgia [Unknown]
